FAERS Safety Report 8732143 (Version 1)
Quarter: 2012Q4

REPORT INFORMATION
  Report Type: 
  Country: US (occurrence: US)
  Receive Date: 20120906
  Receipt Date: 20120906
  Transmission Date: 20130627
  Serious: No
  Sender: FDA-Public Use
  Company Number: US-ASTRAZENECA-2012SE56294

PATIENT
  Age: 84 Year
  Sex: Female

DRUGS (2)
  1. SYMBICORT PMDI [Suspect]
     Dosage: 160, TWO TIMES A DAY
     Route: 055
  2. AMBUTEROL [Concomitant]

REACTIONS (1)
  - Dysphonia [Unknown]
